FAERS Safety Report 6617971-5 (Version None)
Quarter: 2010Q1

REPORT INFORMATION
  Report Type: 
  Country: None (occurrence: None)
  Receive Date: 20100308
  Receipt Date: 20100301
  Transmission Date: 20100710
  Serious: Yes (Life-Threatening, Hospitalization)
  Sender: FDA-Public Use
  Company Number: PHHY2009SE37753

PATIENT
  Sex: Male

DRUGS (8)
  1. TASIGNA [Suspect]
     Indication: CHRONIC LEUKAEMIA
     Dosage: 400 MG, BID
     Dates: start: 20081015
  2. PLAVIX [Concomitant]
     Dosage: 75 MG 1X1
  3. IMDUR [Concomitant]
     Dosage: 30 MG 2X1
  4. OMEPRAZOLE [Concomitant]
     Dosage: 20 MG 1X1
  5. ESIDRIX [Concomitant]
     Dosage: 25 MG 1X1
  6. COZAAR [Concomitant]
     Dosage: 1X1
  7. SIMVASTATIN [Concomitant]
     Dosage: 20 MG 1X1
  8. NITROLINGUAL [Concomitant]
     Dosage: 0.4 MG/DOSE 1 DOSE WHEN NEEDED

REACTIONS (7)
  - ABDOMINAL PAIN UPPER [None]
  - ANGINA UNSTABLE [None]
  - BLOOD PRESSURE INCREASED [None]
  - CARDIOMEGALY [None]
  - CHEST PAIN [None]
  - CORONARY ARTERY STENOSIS [None]
  - PAIN [None]
